FAERS Safety Report 8874013 (Version 1)
Quarter: 2012Q4

REPORT INFORMATION
  Report Type: 
  Country: US (occurrence: US)
  Receive Date: 20121023
  Receipt Date: 20121023
  Transmission Date: 20130627
  Serious: Yes (Hospitalization, Other)
  Sender: FDA-Public Use
  Company Number: US-PFIZER INC-2003122727

PATIENT

DRUGS (7)
  1. PREVACID [Suspect]
     Indication: GASTROOESOPHAGEAL REFLUX DISEASE
     Dosage: 15 mg, 1x/day
     Route: 064
     Dates: start: 20030822, end: 20031003
  2. DIFLUCAN [Suspect]
     Indication: ORAL CANDIDIASIS
     Dosage: UNK
     Dates: start: 200309
  3. ZOLOFT [Suspect]
     Indication: DEPRESSION
     Dosage: 50mg daily
     Dates: start: 20030918
  4. NYSTATIN [Concomitant]
     Indication: ORAL CANDIDIASIS
     Route: 065
     Dates: start: 200309
  5. AUGMENTIN [Concomitant]
     Indication: URINARY TRACT INFECTION
     Dosage: 500 mg, 2x/day
     Dates: start: 20030924, end: 20031003
  6. BRETHINE [Concomitant]
     Indication: PREMATURE LABOUR
     Dosage: UNK
     Dates: start: 20030930
  7. KEFLEX [Concomitant]
     Indication: URINARY TRACT INFECTION
     Dosage: 500 mg, 2x/day
     Dates: start: 20031003

REACTIONS (4)
  - Maternal exposure timing unspecified [Unknown]
  - Feeling jittery [Recovered/Resolved]
  - Premature baby [Recovered/Resolved]
  - Apgar score low [Recovered/Resolved]
